FAERS Safety Report 5042957-4 (Version None)
Quarter: 2006Q2

REPORT INFORMATION
  Report Type: 
  Country: None (occurrence: None)
  Receive Date: 20060628
  Receipt Date: 20060620
  Transmission Date: 20061013
  Serious: Yes (Hospitalization)
  Sender: FDA-Public Use
  Company Number: 226494

PATIENT
  Age: 67 Year
  Sex: Male
  Weight: 98.5 kg

DRUGS (10)
  1. AVASTIN [Suspect]
     Indication: NON-SMALL CELL LUNG CANCER
     Dosage: 15 MG/KG, Q3W, INTRAVENOUS
     Route: 042
     Dates: start: 20051213, end: 20060606
  2. PEMETREXED(PEMETREXED) [Suspect]
     Indication: NON-SMALL CELL LUNG CANCER
     Dosage: 500 MG/M2, Q3W, INTRAVENOUS
     Route: 042
     Dates: start: 20051213, end: 20060606
  3. CARBOPLATIN [Suspect]
     Indication: NON-SMALL CELL LUNG CANCER
  4. NEXIUM [Concomitant]
  5. PREDNISONE TAB [Concomitant]
  6. FOLIC ACIC (FOLIC ACID) [Concomitant]
  7. SOTALOL HYDROCHLORIDE [Concomitant]
  8. METOPROLOL TARTRATE [Concomitant]
  9. MORPHINE SULFATE [Concomitant]
  10. MVI (MULTIVITAMINS NOS) [Concomitant]

REACTIONS (12)
  - ANOREXIA [None]
  - ATRIAL FIBRILLATION [None]
  - CHEST PAIN [None]
  - EPISTAXIS [None]
  - FATIGUE [None]
  - HAEMORRHAGIC DIATHESIS [None]
  - HEADACHE [None]
  - ODYNOPHAGIA [None]
  - ORAL SOFT TISSUE DISORDER [None]
  - PLATELET COUNT DECREASED [None]
  - RED BLOOD CELL COUNT DECREASED [None]
  - WHITE BLOOD CELL COUNT DECREASED [None]
